FAERS Safety Report 5921782-3 (Version None)
Quarter: 2008Q4

REPORT INFORMATION
  Report Type: 
  Country: None (occurrence: None)
  Receive Date: 20081017
  Receipt Date: 20081008
  Transmission Date: 20090506
  Serious: Yes (Other)
  Sender: FDA-Public Use
  Company Number: DE-JNJFOC-20081002415

PATIENT
  Age: 10 Year
  Sex: Male

DRUGS (2)
  1. REMICADE [Suspect]
     Dosage: 5TH INFUSION OF INFLIXIMAB
     Route: 042
  2. REMICADE [Suspect]
     Indication: CROHN'S DISEASE
     Dosage: INFUSIONS 1-4 ADMINISTERED ON UNKNOWN DATES
     Route: 042

REACTIONS (2)
  - ANTIBODY TEST POSITIVE [None]
  - DIARRHOEA [None]
